FAERS Safety Report 10285886 (Version 1)
Quarter: 2014Q3

REPORT INFORMATION
  Report Type: Spontaneous
  Country: US (occurrence: None)
  Receive Date: 20140703
  Receipt Date: 20140703
  Transmission Date: 20150326
  Serious: Yes (Life-Threatening, Disabling, Other)
  Sender: FDA-Public Use
  Company Number: None

PATIENT
  Age: 25 Year
  Sex: Female
  Weight: 54.43 kg

DRUGS (1)
  1. HYDROCORTISONE. [Suspect]
     Active Substance: HYDROCORTISONE
     Indication: ADDISON^S DISEASE
     Dosage: 2 TABLETS, THREE TIMES DAILY, TAKEN BY MOUTH
     Route: 048
     Dates: start: 20120702, end: 20140702

REACTIONS (9)
  - Headache [None]
  - Dyspnoea [None]
  - Product substitution issue [None]
  - Thinking abnormal [None]
  - Dizziness [None]
  - Confusional state [None]
  - Fatigue [None]
  - Feeling abnormal [None]
  - Nasal congestion [None]

NARRATIVE: CASE EVENT DATE: 20130702
